FAERS Safety Report 7815435-4 (Version None)
Quarter: 2011Q4

REPORT INFORMATION
  Report Type: 
  Country: None (occurrence: None)
  Receive Date: 20111014
  Receipt Date: 20111011
  Transmission Date: 20120403
  Serious: Yes (Other)
  Sender: FDA-Public Use
  Company Number: PHEH2011US00683

PATIENT
  Sex: Female
  Weight: 65 kg

DRUGS (6)
  1. LEXAPRO [Concomitant]
     Dosage: 10 MG, QD
  2. EXELON [Concomitant]
     Dosage: UNK UKN, UNK
  3. LORAZEPAM [Concomitant]
     Dosage: 1 MG, UNK
  4. NEXIUM [Concomitant]
     Dosage: 40 MG, QD
  5. ZYPREXA [Concomitant]
     Dosage: 2.5 MG, UNK
  6. RECLAST [Suspect]
     Indication: OSTEOPOROSIS
     Dosage: 5 MG/YEAR
     Route: 042
     Dates: start: 20100115, end: 20100115

REACTIONS (4)
  - DELUSION [None]
  - HYPERTENSION [None]
  - ANXIETY [None]
  - FEELING ABNORMAL [None]
